APPROVED DRUG PRODUCT: GLIPIZIDE
Active Ingredient: GLIPIZIDE
Strength: 5MG
Dosage Form/Route: TABLET;ORAL
Application: A074223 | Product #001 | TE Code: AB
Applicant: WATSON LABORATORIES INC AN INDIRECT WHOLLY OWNED SUB OF TEVA PHARMACEUTICALS USA INC
Approved: Feb 27, 1995 | RLD: No | RS: No | Type: RX